FAERS Safety Report 7225765-5 (Version None)
Quarter: 2011Q1

REPORT INFORMATION
  Report Type: 
  Country: None (occurrence: None)
  Receive Date: 20110113
  Receipt Date: 20101231
  Transmission Date: 20110831
  Serious: Yes (Life-Threatening)
  Sender: FDA-Public Use
  Company Number: FR-ASTRAZENECA-2011SE01895

PATIENT
  Age: 30 Month
  Sex: Female

DRUGS (2)
  1. SUCCINYLCHOLINE CHLORIDE [Suspect]
     Indication: INDUCTION AND MAINTENANCE OF ANAESTHESIA
     Route: 065
     Dates: start: 20101102, end: 20101102
  2. PROPOFOL [Suspect]
     Indication: INDUCTION OF ANAESTHESIA
     Route: 042
     Dates: start: 20101102, end: 20101102

REACTIONS (1)
  - ANAPHYLACTIC SHOCK [None]
